FAERS Safety Report 21707650 (Version 1)
Quarter: 2022Q4

REPORT INFORMATION
  Report Type: Spontaneous
  Country: ES (occurrence: ES)
  Receive Date: 20221209
  Receipt Date: 20221209
  Transmission Date: 20230113
  Serious: Yes (Other)
  Sender: FDA-Public Use
  Company Number: None

PATIENT
  Age: 92 Year
  Sex: Male

DRUGS (2)
  1. CIPROFLOXACIN [Suspect]
     Active Substance: CIPROFLOXACIN
     Indication: Infection
     Dosage: CIPROFLOXACIN (2049A), UNIT DOSE : 500 MG, FREQUENCY TIME : 12 HOURS, DURATION : 7 DAYS
     Route: 065
     Dates: start: 20220419, end: 20220425
  2. METRONIDAZOLE [Suspect]
     Active Substance: METRONIDAZOLE
     Indication: Infection
     Dosage: METRONIDAZOL (1966A), UNIT DOSE : 500 MG, FREQUENCY TIME : 8  HOURS, DURATION : 4 DAYS
     Dates: start: 20220422, end: 20220425

REACTIONS (1)
  - Generalised tonic-clonic seizure [Recovered/Resolved]

NARRATIVE: CASE EVENT DATE: 20220425
